FAERS Safety Report 8397538 (Version 4)
Quarter: 2013Q3

REPORT INFORMATION
  Report Type: Spontaneous
  Country: US (occurrence: None)
  Receive Date: 20111206
  Receipt Date: 20130706
  Transmission Date: 20140515
  Serious: Yes (Hospitalization)
  Sender: FDA-Public Use
  Company Number: 2011030462

PATIENT
  Age: 11 Year
  Sex: Female
  Weight: 73.48 kg

DRUGS (25)
  1. PRIVIGEN [Suspect]
     Indication: OPTIC NEURITIS
     Dosage: SEE IMAGE
     Route: 042
     Dates: start: 20120506, end: 20120506
  2. PRIVIGEN [Suspect]
  3. PRIVIGEN [Suspect]
  4. PRIVIGEN [Suspect]
  5. PRIVIGEN [Suspect]
  6. PRIVIGEN [Suspect]
  7. FROVA [Suspect]
     Indication: MIGRAINE
  8. MAXALT [Concomitant]
  9. MIRALAX [Concomitant]
  10. VITAMIN D3 (COLECALCIFEROL) [Concomitant]
  11. FAMOTIDINE (FAMOTIDINE) [Concomitant]
  12. MULTIVITAMIN (DAILY MULTIVITAMIN) [Concomitant]
  13. IBUPROFEN (IBUPROFEN) [Concomitant]
  14. PEPCID [Concomitant]
  15. ACETAMINOPHEN (PARACETAMOL) [Concomitant]
  16. FROVA [Concomitant]
  17. NAPROXEN (NAPROXEN) [Concomitant]
  18. VYVANSE (ALL OTHER THERAPEUTIC PRODUCTS) [Concomitant]
  19. OMEPRAZOLE [Concomitant]
  20. ZONEGRAN [Concomitant]
  21. DIPHENHYDRAMINE HYDROCHLORIDE [Concomitant]
  22. HEPARIN [Concomitant]
  23. SODIUM CHLORIDE [Concomitant]
  24. EPINEPHRINE [Concomitant]
  25. BENADRYL [Concomitant]

REACTIONS (9)
  - Headache [None]
  - Asthenia [None]
  - Eye pain [None]
  - Visual field defect [None]
  - Gait disturbance [None]
  - Migraine [None]
  - Infusion related reaction [None]
  - Eye irritation [None]
  - Off label use [None]
